FAERS Safety Report 5589296-0 (Version None)
Quarter: 2008Q1

REPORT INFORMATION
  Report Type: 
  Country: None (occurrence: None)
  Receive Date: 20080109
  Receipt Date: 20080109
  Transmission Date: 20080703
  Serious: Yes (Hospitalization)
  Sender: FDA-Public Use
  Company Number: None

PATIENT
  Sex: Male

DRUGS (1)
  1. TARCEVA [Suspect]
     Indication: PROSTATE CANCER
     Dosage: 150MG QD PO
     Route: 048
     Dates: start: 20071206

REACTIONS (1)
  - DYSPNOEA [None]
